FAERS Safety Report 5167887-9 (Version None)
Quarter: 2006Q4

REPORT INFORMATION
  Report Type: 
  Country: None (occurrence: None)
  Receive Date: 20061208
  Receipt Date: 20061201
  Transmission Date: 20070319
  Serious: Yes (Other)
  Sender: FDA-Public Use
  Company Number: US-JNJFOC-20061200879

PATIENT
  Sex: Female
  Weight: 126.1 kg

DRUGS (8)
  1. INFLIXIMAB [Suspect]
     Indication: RHEUMATOID ARTHRITIS
  2. VERAPAMIL [Concomitant]
  3. DIOVAN HCT [Concomitant]
  4. ALLOPURINOL SODIUM [Concomitant]
  5. CELEBREX [Concomitant]
  6. MULTI-VITAMIN [Concomitant]
  7. CALCIUM [Concomitant]
  8. CRANBERRY [Concomitant]

REACTIONS (1)
  - MALIGNANT MELANOMA [None]
